FAERS Safety Report 4956064-X (Version None)
Quarter: 2006Q1

REPORT INFORMATION
  Report Type: 
  Country: None (occurrence: None)
  Receive Date: 20060328
  Receipt Date: 20041230
  Transmission Date: 20060701
  Serious: Yes (Hospitalization)
  Sender: FDA-Public Use
  Company Number: DE-MERCK-0501DEU00040

PATIENT
  Age: 64 Year
  Sex: Female
  Weight: 100 kg

DRUGS (11)
  1. FUROSEMIDE [Concomitant]
     Route: 048
  2. CELECOXIB [Concomitant]
     Route: 048
  3. VIOXX [Suspect]
     Indication: ARTHRALGIA
     Route: 048
     Dates: end: 20040101
  4. VIOXX [Suspect]
     Route: 048
     Dates: start: 20011228, end: 20020125
  5. PHENPROCOUMON [Concomitant]
     Route: 065
     Dates: start: 20010901, end: 20031001
  6. REPAGLINIDE [Concomitant]
     Route: 048
  7. INSULIN GLARGINE [Concomitant]
     Route: 051
  8. AMLODIPINE BESYLATE [Concomitant]
     Route: 048
  9. FOSINOPRIL SODIUM [Concomitant]
     Route: 048
  10. SIMVASTATIN [Concomitant]
     Route: 048
  11. ALLOPURINOL [Concomitant]
     Route: 048

REACTIONS (6)
  - ARTERIOSCLEROSIS [None]
  - CARDIAC DISORDER [None]
  - CARDIAC FAILURE CONGESTIVE [None]
  - CHOLANGITIS ACUTE [None]
  - GASTRIC DISORDER [None]
  - OSTEOPOROSIS [None]
